FAERS Safety Report 10247844 (Version 1)
Quarter: 2014Q2

REPORT INFORMATION
  Report Type: Spontaneous
  Country: NZ (occurrence: NZ)
  Receive Date: 20140619
  Receipt Date: 20140619
  Transmission Date: 20141212
  Serious: Yes (Hospitalization, Other)
  Sender: FDA-Public Use
  Company Number: NZ-ELI_LILLY_AND_COMPANY-NZ201406004489

PATIENT
  Sex: Male

DRUGS (2)
  1. ZYPREXA RELPREVV [Suspect]
     Indication: PRODUCT USED FOR UNKNOWN INDICATION
     Dosage: 300 MG, UNKNOWN
     Route: 030
  2. ZOPLICONE [Suspect]
     Indication: PRODUCT USED FOR UNKNOWN INDICATION
     Dosage: UNK, PRN
     Route: 065

REACTIONS (13)
  - Dysarthria [Unknown]
  - Tachycardia [Unknown]
  - Blood pressure increased [Unknown]
  - Convulsion [Unknown]
  - Aggression [Unknown]
  - Depressed level of consciousness [Unknown]
  - Disinhibition [Unknown]
  - Bladder disorder [Unknown]
  - Syncope [Unknown]
  - Nausea [Unknown]
  - Asthenia [Unknown]
  - Fatigue [Unknown]
  - Sedation [Unknown]
